FAERS Safety Report 16478562 (Version 1)
Quarter: 2019Q2

REPORT INFORMATION
  Report Type: Spontaneous
  Country: US (occurrence: US)
  Receive Date: 20190626
  Receipt Date: 20190626
  Transmission Date: 20190711
  Serious: No
  Sender: FDA-Public Use
  Company Number: US-PFIZER INC-2019271470

PATIENT
  Age: 54 Year
  Sex: Female
  Weight: 102.95 kg

DRUGS (2)
  1. ADVIL [Suspect]
     Active Substance: IBUPROFEN
     Indication: PAIN IN EXTREMITY
     Dosage: UNK
  2. ASPRIN [Suspect]
     Active Substance: ASPIRIN
     Indication: PAIN IN EXTREMITY
     Dosage: UNK

REACTIONS (2)
  - Drug ineffective [Recovering/Resolving]
  - Diarrhoea [Recovering/Resolving]
